FAERS Safety Report 7395854-3 (Version None)
Quarter: 2011Q2

REPORT INFORMATION
  Report Type: 
  Country: None (occurrence: None)
  Receive Date: 20110405
  Receipt Date: 20110311
  Transmission Date: 20111010
  Serious: No
  Sender: FDA-Public Use
  Company Number: US-BAYER-2011-023579

PATIENT
  Sex: Female
  Weight: 66 kg

DRUGS (2)
  1. PERCOCET [Concomitant]
  2. ALEVE (CAPLET) [Suspect]
     Indication: ANALGESIC THERAPY
     Dosage: 6 DF, UNK
     Route: 048
     Dates: start: 20110302, end: 20110302

REACTIONS (1)
  - PARAESTHESIA [None]
